FAERS Safety Report 11630683 (Version 1)
Quarter: 2015Q4

REPORT INFORMATION
  Report Type: Spontaneous
  Country: BR (occurrence: BR)
  Receive Date: 20151014
  Receipt Date: 20151014
  Transmission Date: 20160304
  Serious: Yes (Other)
  Sender: FDA-Public Use
  Company Number: BR-ELI_LILLY_AND_COMPANY-BR201508006202

PATIENT
  Sex: Male
  Weight: 70 kg

DRUGS (4)
  1. CIALIS [Suspect]
     Active Substance: TADALAFIL
     Dosage: 20 MG, PRN
     Route: 048
  2. VASTAREL [Concomitant]
     Active Substance: TRIMETAZIDINE DIHYDROCHLORIDE
     Indication: PRODUCT USED FOR UNKNOWN INDICATION
     Dosage: 35 MG, UNKNOWN
     Route: 065
  3. CIALIS [Suspect]
     Active Substance: TADALAFIL
     Indication: ERECTILE DYSFUNCTION
     Dosage: 5 MG, QD
     Route: 048
     Dates: start: 2013
  4. TREZOR [Concomitant]
     Active Substance: ROSUVASTATIN CALCIUM
     Indication: PRODUCT USED FOR UNKNOWN INDICATION
     Dosage: 20 MG, UNKNOWN
     Route: 065

REACTIONS (2)
  - Vascular occlusion [Unknown]
  - Drug effect increased [Recovered/Resolved]

NARRATIVE: CASE EVENT DATE: 2014
